FAERS Safety Report 6397017-7 (Version None)
Quarter: 2009Q4

REPORT INFORMATION
  Report Type: 
  Country: None (occurrence: None)
  Receive Date: 20091008
  Receipt Date: 20091008
  Transmission Date: 20100525
  Serious: Yes (Other)
  Sender: FDA-Public Use
  Company Number: None

PATIENT
  Sex: Female
  Weight: 104.3273 kg

DRUGS (4)
  1. CLONAZEPAM [Suspect]
     Indication: ANXIETY
     Dosage: 1 PILL 2-3 TIMES DAILY PO
     Route: 048
  2. CLONAZEPAM [Suspect]
     Indication: PANIC ATTACK
     Dosage: 1 PILL 2-3 TIMES DAILY PO
     Route: 048
  3. CLONAZEPAM [Suspect]
     Indication: ANXIETY
     Dosage: 1 PILL 1-2 TIMES DAILY PO
     Route: 048
  4. CLONAZEPAM [Suspect]
     Indication: PANIC ATTACK
     Dosage: 1 PILL 1-2 TIMES DAILY PO
     Route: 048

REACTIONS (4)
  - AGITATION [None]
  - HEADACHE [None]
  - PRODUCT SUBSTITUTION ISSUE [None]
  - RASH [None]
